FAERS Safety Report 6337362-4 (Version None)
Quarter: 2009Q3

REPORT INFORMATION
  Report Type: 
  Country: None (occurrence: None)
  Receive Date: 20090902
  Receipt Date: 20090825
  Transmission Date: 20100115
  Serious: Yes (Hospitalization, Other)
  Sender: FDA-Public Use
  Company Number: FR-TEVA-207415USA

PATIENT
  Sex: Male

DRUGS (11)
  1. BISELECT [Suspect]
     Route: 048
     Dates: start: 20060101
  2. LEVOTHYROXINE SODIUM [Suspect]
     Route: 048
     Dates: start: 20060101
  3. METFORMIN HCL [Suspect]
     Indication: DIABETES MELLITUS
     Route: 048
     Dates: start: 20060101
  4. AMIODARONE HCL [Suspect]
     Indication: ATRIAL FIBRILLATION
     Route: 048
     Dates: start: 20060101
  5. OMEPRAZOLE [Suspect]
     Route: 048
     Dates: start: 20060101
  6. SPIRAMYCIN [Suspect]
     Indication: LUNG DISORDER
     Dates: start: 20090601, end: 20090625
  7. FUROSEMIDE [Suspect]
     Indication: CARDIAC FAILURE
     Dosage: 500MG IN AM, 250 MG EVENING
     Route: 048
     Dates: start: 20060101
  8. FLUINDIONE [Suspect]
     Indication: THROMBOSIS PROPHYLAXIS
     Route: 048
     Dates: start: 20060101
  9. RAMIPRIL [Suspect]
     Route: 048
     Dates: start: 20060101
  10. LANTUS [Suspect]
     Indication: INSULIN-REQUIRING TYPE 2 DIABETES MELLITUS
     Route: 058
  11. SPIRONOLACTONE [Concomitant]
     Route: 048

REACTIONS (1)
  - PURPURA [None]
